FAERS Safety Report 6758967-2 (Version None)
Quarter: 2010Q2

REPORT INFORMATION
  Report Type: 
  Country: None (occurrence: None)
  Receive Date: 20100607
  Receipt Date: 20100531
  Transmission Date: 20101027
  Serious: Yes (Other)
  Sender: FDA-Public Use
  Company Number: PL-BRISTOL-MYERS SQUIBB COMPANY-15129554

PATIENT
  Age: 53 Year
  Sex: Female

DRUGS (2)
  1. ABILIFY [Suspect]
     Dosage: AFTER ONE MONTH 30 MG/DAY
  2. RISPERDAL CONSTA [Concomitant]

REACTIONS (2)
  - HALLUCINATION, AUDITORY [None]
  - SLEEP DISORDER [None]
